FAERS Safety Report 7774442-0 (Version None)
Quarter: 2011Q3

REPORT INFORMATION
  Report Type: 
  Country: None (occurrence: None)
  Receive Date: 20110921
  Receipt Date: 20110722
  Transmission Date: 20111222
  Serious: Yes (Hospitalization)
  Sender: FDA-Public Use
  Company Number: UTC-008834

PATIENT
  Age: 50 Year
  Sex: Male
  Weight: 158.1 kg

DRUGS (2)
  1. DIURETICS (DIURETICS) [Concomitant]
  2. TYVASO [Suspect]
     Indication: PULMONARY ARTERIAL HYPERTENSION
     Dosage: 192 MCG (48 MCG, 4 IN 1 D), INHALATION
     Route: 055
     Dates: start: 20110323

REACTIONS (5)
  - HAEMOPTYSIS [None]
  - DRUG INEFFECTIVE [None]
  - DIZZINESS EXERTIONAL [None]
  - EXERCISE TOLERANCE DECREASED [None]
  - EPISTAXIS [None]
